FAERS Safety Report 10102091 (Version 1)
Quarter: 2014Q2

REPORT INFORMATION
  Report Type: Spontaneous
  Country: US (occurrence: US)
  Receive Date: 20140424
  Receipt Date: 20140424
  Transmission Date: 20141212
  Serious: Yes (Other)
  Sender: FDA-Public Use
  Company Number: US-ABBVIE-14P-163-1228374-00

PATIENT
  Sex: Male
  Weight: 108.96 kg

DRUGS (4)
  1. ANDROGEL [Suspect]
     Indication: MUSCULAR WEAKNESS
     Dosage: 2 (5GRAM) PACKET DAILY
     Route: 061
     Dates: start: 2007, end: 2012
  2. ANDROGEL [Suspect]
     Indication: GAIT DISTURBANCE
     Dosage: 1 (5GRAM) PACKET DAILY
     Route: 061
     Dates: start: 2012, end: 2013
  3. ANDROGEL [Suspect]
     Indication: TREMOR
  4. AVONEX [Concomitant]
     Indication: MULTIPLE SCLEROSIS
     Dates: start: 201402

REACTIONS (11)
  - Multiple sclerosis [Not Recovered/Not Resolved]
  - Off label use [Not Recovered/Not Resolved]
  - Asthenia [Not Recovered/Not Resolved]
  - Incorrect dose administered [Recovered/Resolved]
  - Fatigue [Not Recovered/Not Resolved]
  - Muscular weakness [Not Recovered/Not Resolved]
  - Memory impairment [Not Recovered/Not Resolved]
  - Muscular weakness [Not Recovered/Not Resolved]
  - Muscular weakness [Not Recovered/Not Resolved]
  - Gait disturbance [Not Recovered/Not Resolved]
  - Tremor [Not Recovered/Not Resolved]
